FAERS Safety Report 19936884 (Version 1)
Quarter: 2021Q4

REPORT INFORMATION
  Report Type: Spontaneous
  Country: US (occurrence: US)
  Receive Date: 20211009
  Receipt Date: 20211009
  Transmission Date: 20220303
  Serious: Yes (Other)
  Sender: FDA-Public Use
  Company Number: US-TEVA-2021-US-1961644

PATIENT
  Age: 52 Year
  Sex: Female

DRUGS (1)
  1. PROAIR HFA [Suspect]
     Active Substance: ALBUTEROL SULFATE
     Indication: Asthma
     Dosage: INHALATION - AEROSOL, 2 PUFFS EVERY 4-6 HOURS
     Route: 065
     Dates: start: 2019

REACTIONS (10)
  - Neoplasm malignant [Unknown]
  - Dysentery [Unknown]
  - Pharyngeal haemorrhage [Unknown]
  - Illness [Unknown]
  - Dysphagia [Unknown]
  - Cough [Unknown]
  - Dyspnoea [Unknown]
  - Oropharyngeal pain [Unknown]
  - Oral discomfort [Unknown]
  - Milk allergy [Unknown]

NARRATIVE: CASE EVENT DATE: 20190101
